FAERS Safety Report 5566885-0 (Version None)
Quarter: 2007Q4

REPORT INFORMATION
  Report Type: 
  Country: None (occurrence: None)
  Receive Date: 20071219
  Receipt Date: 20061103
  Transmission Date: 20080405
  Serious: No
  Sender: FDA-Public Use
  Company Number: US-BRISTOL-MYERS SQUIBB COMPANY-13566096

PATIENT
  Age: 75 Year
  Sex: Female
  Weight: 54 kg

DRUGS (3)
  1. PRAVACHOL [Suspect]
     Indication: BLOOD CHOLESTEROL INCREASED
     Dosage: INCREASED TO 10MG, INCREASED TO 20MG ON -JAN-2006
     Dates: start: 19890101
  2. FEMARA [Concomitant]
     Indication: BREAST CANCER
     Dates: start: 20060301
  3. MULTI-VITAMIN [Concomitant]

REACTIONS (1)
  - ALOPECIA [None]
